FAERS Safety Report 5159900-X (Version None)
Quarter: 2006Q4

REPORT INFORMATION
  Report Type: 
  Country: None (occurrence: None)
  Receive Date: 20061129
  Receipt Date: 20060420
  Transmission Date: 20070319
  Serious: No
  Sender: FDA-Public Use
  Company Number: US-GLAXOSMITHKLINE-A0602641A

PATIENT
  Age: 49 Year
  Sex: Female
  Weight: 52.3 kg

DRUGS (2)
  1. WELLBUTRIN SR [Suspect]
     Indication: DEPRESSION
     Dosage: 150MG PER DAY
     Route: 048
     Dates: start: 20010901, end: 20010901
  2. NO CONCURRENT MEDICATION [Concomitant]

REACTIONS (3)
  - ASTHENIA [None]
  - DEPRESSION [None]
  - ENERGY INCREASED [None]
